FAERS Safety Report 26060873 (Version 1)
Quarter: 2025Q4

REPORT INFORMATION
  Report Type: Spontaneous
  Country: US (occurrence: None)
  Receive Date: 20251118
  Receipt Date: 20251118
  Transmission Date: 20260117
  Serious: Yes (Life-Threatening)
  Sender: FDA-CTU
  Company Number: None

PATIENT
  Age: 66 Year
  Sex: Male
  Weight: 103 kg

DRUGS (1)
  1. METHYLPREDNISOLONE ACETATE [Suspect]
     Active Substance: METHYLPREDNISOLONE ACETATE
     Indication: Urticaria
     Dosage: OTHER FREQUENCY : ONCE;?
     Route: 030
     Dates: start: 20251118, end: 20251118

REACTIONS (3)
  - Hyperhidrosis [None]
  - Vomiting [None]
  - Injection site pain [None]

NARRATIVE: CASE EVENT DATE: 20251118
